FAERS Safety Report 6106780-1 (Version None)
Quarter: 2009Q1

REPORT INFORMATION
  Report Type: 
  Country: None (occurrence: None)
  Receive Date: 20090304
  Receipt Date: 20090225
  Transmission Date: 20090719
  Serious: Yes (Death, Hospitalization)
  Sender: FDA-Public Use
  Company Number: APP200900100

PATIENT
  Age: 58 Year
  Sex: Male

DRUGS (6)
  1. HEPARIN SODIUM INJECTION [Suspect]
     Indication: DRUG USE FOR UNKNOWN INDICATION
     Dates: start: 20070728, end: 20070817
  2. HEPARIN SODIUM [Suspect]
     Indication: DRUG USE FOR UNKNOWN INDICATION
     Dates: start: 20070728, end: 20070817
  3. COUMADIN [Concomitant]
  4. ENALAPRIL MALEATE [Concomitant]
  5. FUROSEMIDE [Concomitant]
  6. DIGOXIN [Concomitant]

REACTIONS (12)
  - ACUTE RESPIRATORY FAILURE [None]
  - CARDIAC ARREST [None]
  - CONFUSIONAL STATE [None]
  - HAEMATEMESIS [None]
  - HAEMATOCHEZIA [None]
  - HAEMORRHAGE [None]
  - HYPERCOAGULATION [None]
  - PNEUMONIA ASPIRATION [None]
  - PULMONARY EMBOLISM [None]
  - PULMONARY HYPERTENSION [None]
  - RENAL FAILURE ACUTE [None]
  - SEPSIS [None]
